FAERS Safety Report 5426650-1 (Version None)
Quarter: 2007Q3

REPORT INFORMATION
  Report Type: 
  Country: None (occurrence: None)
  Receive Date: 20070731
  Receipt Date: 20070511
  Transmission Date: 20080115
  Serious: No
  Sender: FDA-Public Use
  Company Number: 2006PV010912

PATIENT
  Age: 67 Year
  Sex: Female
  Weight: 88.4 kg

DRUGS (4)
  1. EXENATIDE (EXENATIDE) PEN, DISPOSABLE [Suspect]
     Indication: TYPE 2 DIABETES MELLITUS
     Dosage: 10 UG, 2/D, SUBCUTANEOUS; 5 UG, 2/D, 10 UG,
     Route: 058
     Dates: start: 20050801, end: 20060101
  2. EXENATIDE (EXENATIDE) PEN, DISPOSABLE [Suspect]
     Indication: TYPE 2 DIABETES MELLITUS
     Dosage: 10 UG, 2/D, SUBCUTANEOUS; 5 UG, 2/D, 10 UG,
     Route: 058
     Dates: start: 20060101
  3. EXENATIDE (EXENATIDE) PEN, DISPOSABLE [Suspect]
  4. EXENATIDE 10MCG PEN, DISPOSABLE DEVICE (EXENATIDE PEN (10MCG)) PEN, DI [Concomitant]

REACTIONS (4)
  - ANOREXIA [None]
  - DIZZINESS [None]
  - NAUSEA [None]
  - WEIGHT DECREASED [None]
